FAERS Safety Report 9805798 (Version 6)
Quarter: 2015Q3

REPORT INFORMATION
  Report Type: Report from Study
  Country: JP (occurrence: JP)
  Receive Date: 20140109
  Receipt Date: 20150706
  Transmission Date: 20151125
  Serious: Yes (Hospitalization, Other)
  Sender: FDA-Public Use
  Company Number: PHHY2014JP001865

PATIENT
  Age: 31 Year
  Sex: Female

DRUGS (72)
  1. HIRNAMIN [Concomitant]
     Active Substance: PHENOTHIAZINE
     Indication: SCHIZOPHRENIA, DISORGANISED TYPE
     Dosage: 100 MG, QD
     Route: 048
     Dates: start: 20130120, end: 20130120
  2. HIRNAMIN [Concomitant]
     Active Substance: PHENOTHIAZINE
     Dosage: 150 MG, QD
     Route: 048
     Dates: start: 20130121, end: 20130124
  3. LEUCON [Concomitant]
     Dosage: 60 MG, QD
     Route: 048
     Dates: start: 20140122, end: 20140214
  4. CLOZARIL [Suspect]
     Active Substance: CLOZAPINE
     Dosage: 75 MG, QD
     Route: 048
     Dates: start: 20130306, end: 20130312
  5. CLOZARIL [Suspect]
     Active Substance: CLOZAPINE
     Dosage: 100 MG, QD
     Route: 048
     Dates: start: 20130313, end: 20130316
  6. CLOZARIL [Suspect]
     Active Substance: CLOZAPINE
     Dosage: 450 MG, QD
     Route: 048
     Dates: start: 20130508, end: 20130514
  7. EMILACE [Concomitant]
     Indication: SCHIZOPHRENIA, DISORGANISED TYPE
     Dosage: 30 MG, UNK
     Route: 048
     Dates: start: 20130220
  8. EMILACE [Concomitant]
     Dosage: 15 MG, UNK
     Route: 048
  9. EMILACE [Concomitant]
     Dosage: 36 MG, QD
     Route: 048
     Dates: start: 20140104, end: 20140104
  10. EMILACE [Concomitant]
     Dosage: 45 MG, QD
     Route: 048
     Dates: start: 20140105, end: 20140113
  11. AKINETON [Concomitant]
     Active Substance: BIPERIDEN HYDROCHLORIDE
     Dosage: 2 MG, UNK
     Route: 048
     Dates: end: 20130305
  12. LIMAS [Concomitant]
     Active Substance: LITHIUM CARBONATE
     Indication: SCHIZOPHRENIA, DISORGANISED TYPE
     Dosage: 600 MG, UNK
     Route: 048
  13. DEPAKENE [Concomitant]
     Active Substance: VALPROIC ACID
     Indication: SCHIZOPHRENIA, DISORGANISED TYPE
     Dosage: 600 MG, QD
     Route: 048
     Dates: start: 20130126
  14. DEPAKENE [Concomitant]
     Active Substance: VALPROIC ACID
     Dosage: 1000 MG, QD
     Route: 048
     Dates: start: 20130611
  15. LEUCON [Concomitant]
     Dosage: 40 MG, QD
     Route: 048
     Dates: start: 20140222
  16. LAMICTAL [Concomitant]
     Active Substance: LAMOTRIGINE
     Dosage: 50 MG, QD
     Route: 048
     Dates: start: 20140106
  17. CLOZARIL [Suspect]
     Active Substance: CLOZAPINE
     Dosage: 450 MG, BID
     Route: 048
     Dates: start: 20131126, end: 20131228
  18. HIRNAMIN [Concomitant]
     Active Substance: PHENOTHIAZINE
     Dosage: 375 MG, QD
     Route: 048
     Dates: start: 20140129, end: 20140131
  19. HIRNAMIN [Concomitant]
     Active Substance: PHENOTHIAZINE
     Dosage: 450 MG, QD
     Route: 048
     Dates: start: 20140201
  20. AKINETON [Concomitant]
     Active Substance: BIPERIDEN HYDROCHLORIDE
     Dosage: 2 MG, QD
     Route: 048
     Dates: start: 20140106, end: 20140106
  21. CONTOMIN//CHLORPROMAZINE HIBENZATE [Concomitant]
     Dosage: 150 MG, QD
     Route: 048
     Dates: start: 20140208, end: 20140214
  22. ZYPREXA [Concomitant]
     Active Substance: OLANZAPINE
     Indication: SCHIZOPHRENIA, DISORGANISED TYPE
     Dosage: 10 MG, QD
     Route: 065
     Dates: start: 20140119, end: 20140119
  23. CLOZARIL [Suspect]
     Active Substance: CLOZAPINE
     Dosage: 150 MG, QD
     Route: 048
     Dates: start: 20130320, end: 20130323
  24. CLOZARIL [Suspect]
     Active Substance: CLOZAPINE
     Dosage: 400 MG, QD
     Route: 048
     Dates: start: 20130410, end: 20130414
  25. CLOZARIL [Suspect]
     Active Substance: CLOZAPINE
     Dosage: 200 MG, QD
     Route: 048
     Dates: start: 20140101, end: 20140101
  26. EMILACE [Concomitant]
     Dosage: 27 MG, QD
     Route: 048
     Dates: start: 20140102, end: 20140102
  27. GASMOTIN [Concomitant]
     Active Substance: MOSAPRIDE CITRATE
     Indication: SCHIZOPHRENIA, DISORGANISED TYPE
     Dosage: 15 MG, QD
     Route: 048
     Dates: start: 20130408, end: 20130830
  28. LEUCON [Concomitant]
     Indication: WHITE BLOOD CELL COUNT INCREASED
     Dosage: 60 MG, QD
     Route: 048
     Dates: start: 20130704, end: 20140117
  29. LEUCON [Concomitant]
     Dosage: 50 MG, QD
     Route: 048
     Dates: start: 20140215, end: 20140221
  30. CONTOMIN//CHLORPROMAZINE HIBENZATE [Concomitant]
     Dosage: 250 MG, QD
     Route: 065
     Dates: start: 20140222
  31. CLOZARIL [Suspect]
     Active Substance: CLOZAPINE
     Indication: SCHIZOPHRENIA
     Dosage: 12.5 MG, QD
     Route: 048
     Dates: start: 20130220, end: 20130220
  32. CLOZARIL [Suspect]
     Active Substance: CLOZAPINE
     Dosage: 25 MG, QD
     Route: 048
     Dates: start: 20130221, end: 20130226
  33. CLOZARIL [Suspect]
     Active Substance: CLOZAPINE
     Dosage: 350 MG, QD
     Route: 048
     Dates: start: 20130415, end: 20130423
  34. CLOZARIL [Suspect]
     Active Substance: CLOZAPINE
     Dosage: 400 MG, QD
     Route: 048
     Dates: start: 20130424, end: 20130507
  35. CLOZARIL [Suspect]
     Active Substance: CLOZAPINE
     Dosage: 475 MG, BID
     Route: 048
     Dates: start: 20131023, end: 20131125
  36. CLOZARIL [Suspect]
     Active Substance: CLOZAPINE
     Dosage: 425 MG, BID
     Route: 048
     Dates: start: 20131229, end: 20131230
  37. HIRNAMIN [Concomitant]
     Active Substance: PHENOTHIAZINE
     Dosage: 225 MG, QD
     Route: 048
     Dates: start: 20140125, end: 20140126
  38. HIRNAMIN [Concomitant]
     Active Substance: PHENOTHIAZINE
     Dosage: 300 MG, QD
     Route: 048
     Dates: start: 20140128, end: 20140128
  39. EMILACE [Concomitant]
     Dosage: 6 MG, UNK
     Route: 048
     Dates: end: 20130303
  40. EMILACE [Concomitant]
     Dosage: 18 MG, QD
     Route: 048
     Dates: start: 20140101, end: 20140101
  41. EMILACE [Concomitant]
     Dosage: 33 MG, QD
     Route: 048
     Dates: start: 20140103, end: 20140103
  42. EMILACE [Concomitant]
     Dosage: 60 MG, QD
     Route: 048
     Dates: start: 20140122
  43. AKINETON [Concomitant]
     Active Substance: BIPERIDEN HYDROCHLORIDE
     Indication: SCHIZOPHRENIA, DISORGANISED TYPE
     Dosage: 3 MG, UNK
     Route: 048
  44. AKINETON [Concomitant]
     Active Substance: BIPERIDEN HYDROCHLORIDE
     Dosage: 3 MG, QD
     Route: 048
     Dates: start: 20140107
  45. DEPAKENE [Concomitant]
     Active Substance: VALPROIC ACID
     Dosage: 800 MG, QD
     Route: 048
     Dates: end: 20130610
  46. ROHYPNOL [Concomitant]
     Active Substance: FLUNITRAZEPAM
     Dosage: 1 MG, UNK
     Route: 048
     Dates: end: 20130412
  47. PANTOSIN [Concomitant]
     Active Substance: PANTETHINE
     Indication: SCHIZOPHRENIA, DISORGANISED TYPE
     Dosage: 600 MG, QD
     Route: 048
     Dates: start: 20130410, end: 20131004
  48. LAMICTAL [Concomitant]
     Active Substance: LAMOTRIGINE
     Indication: SCHIZOPHRENIA, DISORGANISED TYPE
     Dosage: 25 MG, QD
     Route: 048
     Dates: start: 20131205, end: 20140105
  49. CLOZARIL [Suspect]
     Active Substance: CLOZAPINE
     Dosage: 50 MG, QD
     Route: 048
     Dates: start: 20130227, end: 20130305
  50. HIRNAMIN [Concomitant]
     Active Substance: PHENOTHIAZINE
     Dosage: 275 MG, QD
     Route: 048
     Dates: start: 20140127, end: 20140127
  51. FLOMOX//CEFCAPENE PIVOXIL HYDROCHLORIDE [Concomitant]
     Active Substance: CEFCAPENE PIVOXIL HYDROCHLORIDE HYDRATE
     Indication: PRODUCT USED FOR UNKNOWN INDICATION
     Dosage: 300 MG, UNK
     Route: 048
     Dates: start: 20130321, end: 20130325
  52. CONTOMIN//CHLORPROMAZINE HIBENZATE [Concomitant]
     Dosage: 200 MG, QD
     Route: 048
     Dates: start: 20140215, end: 20140221
  53. CLOZARIL [Suspect]
     Active Substance: CLOZAPINE
     Dosage: 125 MG, QD
     Route: 048
     Dates: start: 20130317, end: 20130319
  54. CLOZARIL [Suspect]
     Active Substance: CLOZAPINE
     Dosage: 200 MG, QD
     Route: 048
     Dates: start: 20130327, end: 20130402
  55. CLOZARIL [Suspect]
     Active Substance: CLOZAPINE
     Dosage: 300 MG, QD
     Route: 048
     Dates: start: 20130403, end: 20130409
  56. CLOZARIL [Suspect]
     Active Substance: CLOZAPINE
     Dosage: 450 MG, BID
     Route: 048
     Dates: start: 20130807, end: 20131022
  57. CLOZARIL [Suspect]
     Active Substance: CLOZAPINE
     Dosage: 400 MG, BID
     Route: 048
     Dates: start: 20131231, end: 20131231
  58. HIRNAMIN [Concomitant]
     Active Substance: PHENOTHIAZINE
     Dosage: 200 MG, QD
     Route: 048
     Dates: start: 20130220
  59. EMILACE [Concomitant]
     Dosage: 48 MG, QD
     Route: 048
     Dates: start: 20140114, end: 20140117
  60. PRIMPERAN [Concomitant]
     Active Substance: METOCLOPRAMIDE HYDROCHLORIDE
     Indication: SCHIZOPHRENIA, DISORGANISED TYPE
     Dosage: 10 MG, UNK
     Route: 065
     Dates: start: 20130414, end: 20130414
  61. LEUCON [Concomitant]
     Dosage: 50 MG, QD
     Route: 048
     Dates: start: 20140118, end: 20140121
  62. DORAL [Concomitant]
     Active Substance: QUAZEPAM
     Indication: SCHIZOPHRENIA, DISORGANISED TYPE
     Dosage: 15 MG, QD
     Route: 065
     Dates: start: 20140103
  63. CONTOMIN//CHLORPROMAZINE HIBENZATE [Concomitant]
     Indication: SCHIZOPHRENIA, DISORGANISED TYPE
     Dosage: 100 MG, QD
     Route: 048
     Dates: start: 20140204, end: 20140207
  64. CLOZARIL [Suspect]
     Active Substance: CLOZAPINE
     Dosage: 175 MG, QD
     Route: 048
     Dates: start: 20130324, end: 20130326
  65. CLOZARIL [Suspect]
     Active Substance: CLOZAPINE
     Dosage: 425 MG, QD
     Route: 048
     Dates: start: 20130515, end: 20130807
  66. HIRNAMIN [Concomitant]
     Active Substance: PHENOTHIAZINE
     Dosage: 100 MG, QD
     Route: 048
     Dates: end: 20130303
  67. EMILACE [Concomitant]
     Dosage: 54 MG, QD
     Route: 048
     Dates: start: 20140118, end: 20140121
  68. LIMAS [Concomitant]
     Active Substance: LITHIUM CARBONATE
     Dosage: 400 MG, UNK
     Route: 048
     Dates: end: 20130610
  69. ROHYPNOL [Concomitant]
     Active Substance: FLUNITRAZEPAM
     Indication: SCHIZOPHRENIA, DISORGANISED TYPE
     Dosage: 2 MG, UNK
     Route: 048
  70. LAMISIL 1 [Concomitant]
     Indication: PRODUCT USED FOR UNKNOWN INDICATION
     Dosage: UNK
     Route: 065
     Dates: start: 20130703
  71. LACTEC                             /00490001/ [Concomitant]
     Indication: DEHYDRATION
     Dosage: 500 ML, QD
     Route: 065
     Dates: start: 20140105, end: 20140105
  72. SOLITA T [Concomitant]
     Indication: DEHYDRATION
     Dosage: 500 ML, QD
     Route: 065
     Dates: start: 20140106, end: 20140106

REACTIONS (10)
  - Neutrophil percentage decreased [Unknown]
  - Red blood cell count decreased [Unknown]
  - Leukopenia [Recovered/Resolved]
  - Vomiting [Unknown]
  - Haematocrit decreased [Unknown]
  - Viral infection [Unknown]
  - Diarrhoea [Unknown]
  - Neutropenia [Recovered/Resolved]
  - Mental impairment [Unknown]
  - Haemoglobin decreased [Unknown]

NARRATIVE: CASE EVENT DATE: 2013
